FAERS Safety Report 9100495 (Version 1)
Quarter: 2013Q1

REPORT INFORMATION
  Report Type: Spontaneous
  Country: US (occurrence: US)
  Receive Date: 20130215
  Receipt Date: 20130215
  Transmission Date: 20140127
  Serious: Yes (Other)
  Sender: FDA-Public Use
  Company Number: US-PFIZER INC-2013058781

PATIENT
  Sex: 0

DRUGS (1)
  1. GABAPENTIN [Suspect]
     Indication: SCIATICA
     Dosage: UNK

REACTIONS (5)
  - Gait disturbance [Unknown]
  - Hypokinesia [Unknown]
  - Impaired work ability [Unknown]
  - Pain [Unknown]
  - Drug ineffective [Unknown]
